FAERS Safety Report 18796203 (Version 7)
Quarter: 2025Q1

REPORT INFORMATION
  Report Type: Spontaneous
  Country: US (occurrence: US)
  Receive Date: 20210127
  Receipt Date: 20250218
  Transmission Date: 20250409
  Serious: Yes (Other)
  Sender: PFIZER
  Company Number: US-PFIZER INC-2019467350

PATIENT
  Age: 81 Year
  Sex: Female
  Weight: 60.8 kg

DRUGS (6)
  1. IBRANCE [Suspect]
     Active Substance: PALBOCICLIB
     Indication: Breast cancer metastatic
     Dates: end: 201705
  2. IBRANCE [Suspect]
     Active Substance: PALBOCICLIB
     Route: 048
  3. AMLODIPINE [Concomitant]
     Active Substance: AMLODIPINE BESYLATE
  4. LETROZOLE [Concomitant]
     Active Substance: LETROZOLE
  5. PROPRANOLOL [Concomitant]
     Active Substance: PROPRANOLOL HYDROCHLORIDE
  6. SIMVASTATIN [Concomitant]
     Active Substance: SIMVASTATIN

REACTIONS (3)
  - Sinus operation [Unknown]
  - Sinusitis bacterial [Recovered/Resolved]
  - Mucormycosis [Unknown]

NARRATIVE: CASE EVENT DATE: 20180701
